FAERS Safety Report 19895034 (Version 5)
Quarter: 2021Q4

REPORT INFORMATION
  Report Type: Report from Study
  Country: ES (occurrence: ES)
  Receive Date: 20210928
  Receipt Date: 20211108
  Transmission Date: 20220303
  Serious: Yes (Hospitalization, Other)
  Sender: FDA-Public Use
  Company Number: ES-ABBVIE-21K-144-4088941-00

PATIENT
  Sex: Female

DRUGS (5)
  1. CARBIDOPA\LEVODOPA [Suspect]
     Active Substance: CARBIDOPA\LEVODOPA
     Indication: Parkinson^s disease
     Route: 050
     Dates: start: 20210616, end: 20210920
  2. CARBIDOPA\LEVODOPA [Suspect]
     Active Substance: CARBIDOPA\LEVODOPA
     Dosage: CONTINUOUS DOSE DECREASED BY 0.2ML/H
     Route: 050
     Dates: start: 20210920, end: 20211018
  3. QUETIAPINE [Concomitant]
     Active Substance: QUETIAPINE
     Indication: Product used for unknown indication
     Dosage: IN THE MORNING
     Route: 048
     Dates: end: 20210915
  4. QUETIAPINE [Concomitant]
     Active Substance: QUETIAPINE
     Dates: start: 20210915
  5. BENSERAZIDE HYDROCHLORIDE\LEVODOPA [Concomitant]
     Active Substance: BENSERAZIDE HYDROCHLORIDE\LEVODOPA
     Indication: Product used for unknown indication
     Dates: start: 2021

REACTIONS (15)
  - Guillain-Barre syndrome [Not Recovered/Not Resolved]
  - Vitamin C decreased [Recovered/Resolved]
  - Skin atrophy [Not Recovered/Not Resolved]
  - Device power source issue [Unknown]
  - Nervousness [Not Recovered/Not Resolved]
  - Balance disorder [Not Recovered/Not Resolved]
  - Arthropod bite [Not Recovered/Not Resolved]
  - Purulence [Not Recovered/Not Resolved]
  - Herpes zoster [Unknown]
  - Vitamin B1 deficiency [Unknown]
  - Acne [Not Recovered/Not Resolved]
  - Delirium [Not Recovered/Not Resolved]
  - Vitamin B12 decreased [Not Recovered/Not Resolved]
  - Rash [Not Recovered/Not Resolved]
  - Hallucination [Recovered/Resolved]

NARRATIVE: CASE EVENT DATE: 20210101
